FAERS Safety Report 6361658-3 (Version None)
Quarter: 2009Q3

REPORT INFORMATION
  Report Type: 
  Country: None (occurrence: None)
  Receive Date: 20090918
  Receipt Date: 20090908
  Transmission Date: 20100115
  Serious: Yes (Other)
  Sender: FDA-Public Use
  Company Number: US-PFIZER INC-2009266213

PATIENT
  Age: 51 Year
  Sex: Female
  Weight: 53.515 kg

DRUGS (5)
  1. CELEBREX [Suspect]
     Indication: BURSITIS
     Dosage: 200 MG, 1X/DAY
     Route: 048
     Dates: start: 20090816, end: 20090826
  2. ATENOLOL [Suspect]
     Indication: PALPITATIONS
     Dosage: 25 MG, 1X/DAY
     Dates: start: 20090825
  3. ATENOLOL [Suspect]
     Indication: BLOOD PRESSURE INCREASED
  4. NAPROXEN [Concomitant]
     Indication: BURSITIS
  5. VICODIN [Concomitant]
     Dosage: FREQUENCY: AS NEEDED,

REACTIONS (5)
  - BLOOD PRESSURE INCREASED [None]
  - FLUSHING [None]
  - INSOMNIA [None]
  - PALLOR [None]
  - PALPITATIONS [None]
